FAERS Safety Report 18050108 (Version 2)
Quarter: 2020Q3

REPORT INFORMATION
  Report Type: Spontaneous
  Country: JP (occurrence: JP)
  Receive Date: 20200721
  Receipt Date: 20200915
  Transmission Date: 20201103
  Serious: Yes (Other)
  Sender: FDA-Public Use
  Company Number: JP-GILEAD-2020-0484146

PATIENT
  Age: 70 Year
  Sex: Female

DRUGS (12)
  1. MACITENTAN [Concomitant]
     Active Substance: MACITENTAN
     Dosage: 10 MG, 1D
  2. WARFARIN POTASSIUM [Concomitant]
     Active Substance: WARFARIN POTASSIUM
     Indication: DEEP VEIN THROMBOSIS
     Dosage: 1.5 MG, QD
  3. LANSOPRAZOLE?OD TABLETS [Concomitant]
     Dosage: 15 MG, QD
  4. LOXOPROFEN SODIUM HYDRATE TABLET [Concomitant]
     Dosage: 60 MG, PRN
  5. LOXOPROFEN SODIUM HYDRATE TABLET [Concomitant]
     Dosage: 60 MG, PRN
  6. MAGNESIUM OXIDE. [Concomitant]
     Active Substance: MAGNESIUM OXIDE
     Dosage: 330 MG, TID
  7. MACITENTAN [Concomitant]
     Active Substance: MACITENTAN
     Dosage: 10 MG, 1D
  8. WARFARIN POTASSIUM [Concomitant]
     Active Substance: WARFARIN POTASSIUM
     Dosage: 1.5 MG, QD
  9. LANSOPRAZOLE?OD TABLETS [Concomitant]
     Dosage: 15 MG, QD
  10. MAGNESIUM OXIDE. [Concomitant]
     Active Substance: MAGNESIUM OXIDE
     Dosage: 330 MG, TID
  11. AMBRISENTAN [Suspect]
     Active Substance: AMBRISENTAN
     Indication: PULMONARY ARTERIAL HYPERTENSION
     Dosage: 5 MG, QD
     Route: 048
  12. TADALAFIL. [Suspect]
     Active Substance: TADALAFIL
     Indication: PULMONARY ARTERIAL HYPERTENSION
     Dosage: 20 MG, QD
     Route: 065

REACTIONS (7)
  - Cardiomegaly [Recovered/Resolved]
  - Normochromic normocytic anaemia [Recovered/Resolved]
  - Oedema peripheral [Recovered/Resolved]
  - Left ventricular failure [Recovered/Resolved]
  - Dyspnoea [Unknown]
  - Pulmonary congestion [Unknown]
  - C-reactive protein increased [Unknown]
